FAERS Safety Report 9725693 (Version 4)
Quarter: 2015Q2

REPORT INFORMATION
  Report Type: Spontaneous
  Country: US (occurrence: US)
  Receive Date: 20131203
  Receipt Date: 20150610
  Transmission Date: 20150821
  Serious: Yes (Life-Threatening, Hospitalization, Other)
  Sender: FDA-Public Use
  Company Number: US-BAYER-2013-139846

PATIENT
  Age: 43 Year
  Sex: Female
  Weight: 66 kg

DRUGS (2)
  1. MIRENA [Suspect]
     Active Substance: LEVONORGESTREL
     Indication: CONTRACEPTION
     Dosage: 20 MCG/24HR, CONT
     Route: 015
     Dates: start: 200708, end: 201012
  2. GLUCOTROL [Concomitant]
     Active Substance: GLIPIZIDE
     Dosage: UNK
     Route: 048
     Dates: start: 20100815

REACTIONS (10)
  - Emotional distress [None]
  - Device breakage [None]
  - Abdominal pain lower [None]
  - Injury [None]
  - General physical health deterioration [None]
  - Complication of device removal [None]
  - Embedded device [None]
  - Anxiety [None]
  - Anhedonia [None]
  - Pain [None]

NARRATIVE: CASE EVENT DATE: 201010
